FAERS Safety Report 12939894 (Version 1)
Quarter: 2016Q4

REPORT INFORMATION
  Report Type: Spontaneous
  Country: AR (occurrence: AR)
  Receive Date: 20161115
  Receipt Date: 20161115
  Transmission Date: 20170207
  Serious: Yes (Other)
  Sender: FDA-Public Use
  Company Number: AR-AMGEN-ARGSP2016159255

PATIENT
  Age: 54 Year
  Sex: Male

DRUGS (1)
  1. ENBREL [Suspect]
     Active Substance: ETANERCEPT
     Indication: RHEUMATOID ARTHRITIS
     Dosage: 50 MG, WEEKLY
     Route: 065
     Dates: start: 20130901

REACTIONS (4)
  - Arthralgia [Recovering/Resolving]
  - Fracture malunion [Recovering/Resolving]
  - Mobility decreased [Recovering/Resolving]
  - Bone fissure [Recovering/Resolving]

NARRATIVE: CASE EVENT DATE: 201309
